FAERS Safety Report 7514192-9 (Version None)
Quarter: 2011Q2

REPORT INFORMATION
  Report Type: 
  Country: None (occurrence: None)
  Receive Date: 20110531
  Receipt Date: 20110517
  Transmission Date: 20111010
  Serious: Yes (Hospitalization, Other)
  Sender: FDA-Public Use
  Company Number: BR-GENENTECH-287279

PATIENT
  Sex: Female
  Weight: 81 kg

DRUGS (24)
  1. RITUXIMAB [Suspect]
     Dosage: UNK
     Route: 042
     Dates: start: 20090101, end: 20090101
  2. WARFARIN SODIUM [Concomitant]
     Dosage: 5 MG, UNK
  3. METHOTREXATE [Concomitant]
     Indication: RHEUMATOID ARTHRITIS
     Dosage: 2.5 MG, UNK
     Dates: end: 20100101
  4. FOLIC ACID [Concomitant]
     Dosage: 5 MG, UNK
  5. FOLIC ACID [Concomitant]
     Dosage: 20 MG, UNK
  6. RANITIDINE [Concomitant]
     Indication: PRODUCT USED FOR UNKNOWN INDICATION
     Dosage: 150 MG, UNK
  7. RITUXIMAB [Suspect]
     Indication: RHEUMATOID ARTHRITIS
     Dosage: UNK
     Route: 042
     Dates: start: 20080101
  8. OMEPRAZOLE [Concomitant]
     Indication: PRODUCT USED FOR UNKNOWN INDICATION
     Dosage: 20 MG, UNK
  9. SOMALIUM [Concomitant]
     Indication: SLEEP DISORDER
     Dosage: 6 MG, UNK
  10. FOLIC ACID [Concomitant]
     Indication: PRODUCT USED FOR UNKNOWN INDICATION
     Dosage: 20 MG, QD
  11. DEFLAZACORT [Concomitant]
     Indication: SWELLING
     Dosage: UNK
  12. RITUXIMAB [Suspect]
     Dosage: UNK
     Route: 042
     Dates: start: 20090601, end: 20091015
  13. BROMAZEPAM [Suspect]
     Indication: SLEEP DISORDER
     Dosage: 6 MG, QPM
     Route: 065
  14. ARAVA [Concomitant]
     Indication: PRODUCT USED FOR UNKNOWN INDICATION
     Dosage: 20 MG, QD
  15. LOSARTAN POTASSIUM [Concomitant]
     Indication: HYPERTENSION
     Dosage: 1 UNK, PRN
  16. SERTRALINE HYDROCHLORIDE [Concomitant]
     Indication: PRODUCT USED FOR UNKNOWN INDICATION
     Dosage: 50 MG, UNK
  17. RITUXIMAB [Suspect]
     Dosage: UNK
     Route: 042
     Dates: start: 20100414, end: 20101001
  18. REMICADE [Suspect]
     Indication: RHEUMATOID ARTHRITIS
     Dosage: UNK
     Route: 065
     Dates: start: 20090101
  19. VENALOT [Suspect]
     Indication: PRODUCT USED FOR UNKNOWN INDICATION
     Dosage: 15 MG, UNK
     Route: 065
     Dates: start: 20100301, end: 20100301
  20. WARFARIN SODIUM [Concomitant]
     Indication: PRODUCT USED FOR UNKNOWN INDICATION
     Dosage: 20 MG, UNK
     Dates: start: 20050101, end: 20100301
  21. ATENOLOL [Concomitant]
     Indication: ARRHYTHMIA
  22. FLUOXETINE [Suspect]
     Indication: DEPRESSION
     Dosage: 20 MG, UNK
     Route: 065
  23. ATENOLOL [Concomitant]
     Indication: HYPERTENSION
     Dosage: 50 MG, QD
  24. ATORVASTATIN [Concomitant]
     Indication: BLOOD CHOLESTEROL
     Dosage: 10 MG, UNK

REACTIONS (31)
  - LABORATORY TEST ABNORMAL [None]
  - MUSCLE RIGIDITY [None]
  - IRRITABILITY [None]
  - FALL [None]
  - HYPOAESTHESIA [None]
  - EYE DISORDER [None]
  - TREMOR [None]
  - PYREXIA [None]
  - HEAD DISCOMFORT [None]
  - SPINAL COLUMN INJURY [None]
  - DIZZINESS [None]
  - DEPRESSION [None]
  - INSOMNIA [None]
  - HAEMORRHOIDS [None]
  - ARTHRALGIA [None]
  - THROMBOSIS [None]
  - BODY HEIGHT DECREASED [None]
  - HALLUCINATION [None]
  - MOOD ALTERED [None]
  - BLOOD PRESSURE INCREASED [None]
  - PAIN [None]
  - PULMONARY EMBOLISM [None]
  - DYSLIPIDAEMIA [None]
  - DRUG INEFFECTIVE [None]
  - MALAISE [None]
  - HYPERTENSION [None]
  - HEADACHE [None]
  - FATIGUE [None]
  - DYSSTASIA [None]
  - OSTEOPOROSIS [None]
  - SENSORY LOSS [None]
